FAERS Safety Report 17685694 (Version 6)
Quarter: 2025Q2

REPORT INFORMATION
  Report Type: Spontaneous
  Country: CA (occurrence: CA)
  Receive Date: 20200420
  Receipt Date: 20250502
  Transmission Date: 20250717
  Serious: Yes (Other)
  Sender: TAKEDA
  Company Number: CA-TAKEDA-2020TUS018867

PATIENT
  Age: 53 Year
  Sex: Male

DRUGS (17)
  1. ENTYVIO [Suspect]
     Active Substance: VEDOLIZUMAB
     Indication: Colitis ulcerative
  2. ENTYVIO [Suspect]
     Active Substance: VEDOLIZUMAB
  3. MESALAMINE [Suspect]
     Active Substance: MESALAMINE
     Indication: Colitis ulcerative
  4. MESALAMINE [Suspect]
     Active Substance: MESALAMINE
     Dosage: 4.8 GRAM, QD
     Dates: start: 20160101, end: 20161001
  5. MESALAMINE [Suspect]
     Active Substance: MESALAMINE
     Dates: start: 20170101, end: 20170901
  6. HUMIRA [Suspect]
     Active Substance: ADALIMUMAB
     Indication: Crohn^s disease
  7. INFLECTRA [Suspect]
     Active Substance: INFLIXIMAB-DYYB
     Indication: Colitis ulcerative
  8. XELJANZ [Concomitant]
     Active Substance: TOFACITINIB CITRATE
     Indication: Colitis ulcerative
     Dosage: 5 MILLIGRAM, BID
     Dates: start: 2018
  9. ASACOL [Concomitant]
     Active Substance: MESALAMINE
     Dosage: 4.8 GRAM, QD
     Dates: start: 20161001
  10. CORTIFOAM [Concomitant]
     Active Substance: HYDROCORTISONE ACETATE
     Indication: Colitis ulcerative
  11. Cortiment [Concomitant]
     Indication: Colitis ulcerative
  12. Cortiment [Concomitant]
     Dosage: UNK UNK, QD
     Dates: start: 201707
  13. BUDESONIDE [Concomitant]
     Active Substance: BUDESONIDE
     Dates: start: 20170101, end: 20170901
  14. PREDNISONE [Concomitant]
     Active Substance: PREDNISONE
     Indication: Colitis ulcerative
  15. SULFASALAZINE [Concomitant]
     Active Substance: SULFASALAZINE
     Indication: Colitis ulcerative
     Dates: start: 20090101, end: 20160101
  16. METHOTREXATE [Concomitant]
     Active Substance: METHOTREXATE
  17. TOFACITINIB CITRATE [Concomitant]
     Active Substance: TOFACITINIB CITRATE

REACTIONS (15)
  - Condition aggravated [Unknown]
  - Impaired quality of life [Unknown]
  - Colitis ulcerative [Unknown]
  - Deep vein thrombosis [Unknown]
  - Weight decreased [Unknown]
  - Bronchiectasis [Unknown]
  - Haematochezia [Unknown]
  - Frequent bowel movements [Unknown]
  - Impaired work ability [Unknown]
  - Steroid dependence [Unknown]
  - Loss of personal independence in daily activities [Unknown]
  - Drug ineffective [Unknown]
  - Product use in unapproved indication [Unknown]
  - Off label use [Unknown]
  - Rectal haemorrhage [Unknown]
